FAERS Safety Report 8060248-4 (Version None)
Quarter: 2012Q1

REPORT INFORMATION
  Report Type: 
  Country: None (occurrence: None)
  Receive Date: 20120120
  Receipt Date: 20111026
  Transmission Date: 20120608
  Serious: No
  Sender: FDA-Public Use
  Company Number: US-NOVEN-11US003498

PATIENT
  Sex: Female
  Weight: 61.224 kg

DRUGS (4)
  1. OXYCODONE HCL [Concomitant]
  2. FENTANYL [Suspect]
     Indication: OSTEOARTHRITIS
     Dosage: 100 UG/HR, Q72HRS
     Route: 062
     Dates: start: 20111001
  3. FENTANYL [Suspect]
     Indication: PAIN
  4. DILAUDID [Concomitant]

REACTIONS (2)
  - DRUG ADMINISTRATION ERROR [None]
  - PRODUCT QUALITY ISSUE [None]
